FAERS Safety Report 23961490 (Version 1)
Quarter: 2024Q2

REPORT INFORMATION
  Report Type: Spontaneous
  Country: CH (occurrence: CH)
  Receive Date: 20240611
  Receipt Date: 20240611
  Transmission Date: 20240716
  Serious: Yes (Hospitalization, Other)
  Sender: FDA-Public Use
  Company Number: None

PATIENT
  Age: 51 Year
  Sex: Male

DRUGS (6)
  1. KETALAR [Suspect]
     Active Substance: KETAMINE HYDROCHLORIDE
     Indication: Analgesic therapy
     Dosage: 2 MG, SINGLE
     Route: 042
     Dates: start: 20240520, end: 20240520
  2. KETALGIN (METHADONE) [Suspect]
     Active Substance: METHADONE HYDROCHLORIDE
     Indication: Drug abuse
     Dosage: CHRONIC THERAPY, DOSAGE NOT KNOWN
     Route: 048
  3. MORPHINE HYDROCHLORIDE [Suspect]
     Active Substance: MORPHINE HYDROCHLORIDE
     Indication: Analgesic therapy
     Dosage: 3 MG, SINGLE
     Route: 042
     Dates: start: 20240520, end: 20240520
  4. MIDAZOLAM HYDROCHLORIDE [Suspect]
     Active Substance: MIDAZOLAM HYDROCHLORIDE
     Indication: Analgesic therapy
     Dosage: 1 MG, SINGLE, A SINGLE ADMINISTRATION; IN TOTAL
     Route: 042
     Dates: start: 20240520, end: 20240520
  5. PALEXIA [Suspect]
     Active Substance: TAPENTADOL HYDROCHLORIDE
     Indication: Analgesic therapy
     Dosage: 150 MG, DAILY 50MG-0-0-100MG
     Route: 048
     Dates: start: 202405, end: 20240522
  6. DAFALGAN [Concomitant]
     Active Substance: ACETAMINOPHEN
     Indication: Pain management
     Dosage: 1 G, 4X/DAY
     Route: 048
     Dates: start: 202405

REACTIONS (2)
  - Toxicity to various agents [Recovered/Resolved]
  - Respiratory arrest [Recovered/Resolved]

NARRATIVE: CASE EVENT DATE: 20240520
